FAERS Safety Report 6829785-1 (Version None)
Quarter: 2010Q3

REPORT INFORMATION
  Report Type: 
  Country: None (occurrence: None)
  Receive Date: 20100709
  Receipt Date: 20080125
  Transmission Date: 20110219
  Serious: No
  Sender: FDA-Public Use
  Company Number: US-PFIZER INC-2007009004

PATIENT
  Sex: Female
  Weight: 90.72 kg

DRUGS (8)
  1. CHANTIX [Suspect]
     Indication: SMOKING CESSATION THERAPY
     Dates: start: 20061101
  2. ALL OTHER THERAPEUTIC PRODUCTS [Suspect]
  3. LITHIUM CARBONATE [Concomitant]
     Indication: SCHIZOAFFECTIVE DISORDER
  4. KLONOPIN [Concomitant]
  5. MELLARIL [Concomitant]
  6. GLUCOVANCE [Concomitant]
     Indication: DIABETES MELLITUS
  7. VALSARTAN [Concomitant]
     Indication: HYPERTENSION
  8. ANTIBIOTICS [Concomitant]
     Indication: SINUS DISORDER

REACTIONS (10)
  - ANXIETY [None]
  - ARTHRITIS [None]
  - DYSGEUSIA [None]
  - FEELING ABNORMAL [None]
  - HEADACHE [None]
  - INSOMNIA [None]
  - NAUSEA [None]
  - NERVOUSNESS [None]
  - TOBACCO USER [None]
  - VOMITING [None]
